FAERS Safety Report 4674603-3 (Version None)
Quarter: 2005Q2

REPORT INFORMATION
  Report Type: 
  Country: None (occurrence: None)
  Receive Date: 20050526
  Receipt Date: 20050412
  Transmission Date: 20051028
  Serious: Yes (Other)
  Sender: FDA-Public Use
  Company Number: PHFR2005GB01495

PATIENT
  Age: 15 Year
  Sex: Female
  Weight: 36 kg

DRUGS (4)
  1. SENNA [Concomitant]
     Indication: CONSTIPATION
     Dosage: 2 TABS NOCTE
  2. VALPROATE SODIUM [Concomitant]
     Indication: EPILEPSY
     Dosage: 400 MG/DAY
     Route: 048
  3. BACLOFEN [Suspect]
     Indication: MUSCLE SPASMS
     Dosage: 40 MG/DAY
     Route: 048
     Dates: start: 20030901
  4. DANTROLENE [Concomitant]
     Route: 065

REACTIONS (3)
  - HALLUCINATION [None]
  - MUSCLE SPASMS [None]
  - PARANOIA [None]
